APPROVED DRUG PRODUCT: GABAPENTIN
Active Ingredient: GABAPENTIN
Strength: 300MG
Dosage Form/Route: CAPSULE;ORAL
Application: A075539 | Product #002
Applicant: SANDOZ INC
Approved: Apr 6, 2005 | RLD: No | RS: No | Type: DISCN